FAERS Safety Report 17167276 (Version 2)
Quarter: 2020Q1

REPORT INFORMATION
  Report Type: Spontaneous
  Country: JP (occurrence: JP)
  Receive Date: 20191218
  Receipt Date: 20200225
  Transmission Date: 20200409
  Serious: Yes (Other)
  Sender: FDA-Public Use
  Company Number: JP-TAKEDA-2019TJP029080

PATIENT
  Age: 26 Year
  Sex: Female
  Weight: 42 kg

DRUGS (1)
  1. TRINTELLIX [Suspect]
     Active Substance: VORTIOXETINE HYDROBROMIDE
     Indication: DEPRESSION
     Dosage: 10 MILLIGRAM, QD
     Route: 048
     Dates: start: 20191204, end: 20191209

REACTIONS (1)
  - Activation syndrome [Recovered/Resolved]

NARRATIVE: CASE EVENT DATE: 20191206
